FAERS Safety Report 22093579 (Version 1)
Quarter: 2023Q1

REPORT INFORMATION
  Report Type: Spontaneous
  Country: US (occurrence: None)
  Receive Date: 20230313
  Receipt Date: 20230313
  Transmission Date: 20230417
  Serious: Yes (unspecified)
  Sender: FDA-Public Use
  Company Number: None

PATIENT
  Age: 33 Year
  Sex: Female
  Weight: 75.6 kg

DRUGS (1)
  1. MAGNESIUM CITRATE SALINE LAXATIVE [Suspect]
     Active Substance: MAGNESIUM CITRATE
     Indication: Constipation
     Dosage: OTHER QUANTITY : 1 SALINE LAXATIVE;?OTHER FREQUENCY : TWICE IN 2 MONTHS;?
     Route: 048
     Dates: start: 20230204, end: 20230312

REACTIONS (9)
  - Recalled product administered [None]
  - Constipation [None]
  - Haematochezia [None]
  - Abdominal pain upper [None]
  - Abdominal pain upper [None]
  - Dyspepsia [None]
  - Anorectal discomfort [None]
  - Dysuria [None]
  - Defaecation disorder [None]

NARRATIVE: CASE EVENT DATE: 20230312
